FAERS Safety Report 6574967-X (Version None)
Quarter: 2010Q1

REPORT INFORMATION
  Report Type: 
  Country: None (occurrence: None)
  Receive Date: 20100209
  Receipt Date: 20100129
  Transmission Date: 20100710
  Serious: Yes (Other)
  Sender: FDA-Public Use
  Company Number: US-NOVOPROD-303764

PATIENT
  Age: 81 Year
  Sex: Female
  Weight: 74.83 kg

DRUGS (4)
  1. NOVOLOG [Suspect]
     Indication: INSULIN-REQUIRING TYPE 2 DIABETES MELLITUS
     Dosage: SLIDING SCALE 2-3 IU, TID WITH MEALS
     Route: 058
  2. LANTUS [Suspect]
     Indication: INSULIN-REQUIRING TYPE 2 DIABETES MELLITUS
     Dosage: 20 U, QD AT HS
     Route: 058
  3. COZAAR [Concomitant]
     Indication: HYPERTENSION
     Dosage: UNK
     Route: 048
  4. NORVASC [Concomitant]
     Indication: HYPERTENSION
     Dosage: UNK
     Route: 048

REACTIONS (3)
  - DRUG INEFFECTIVE [None]
  - HALLUCINATION, VISUAL [None]
  - NO THERAPEUTIC RESPONSE [None]
